FAERS Safety Report 7855498-3 (Version None)
Quarter: 2011Q4

REPORT INFORMATION
  Report Type: 
  Country: None (occurrence: None)
  Receive Date: 20111026
  Receipt Date: 20111012
  Transmission Date: 20120403
  Serious: Yes (Other)
  Sender: FDA-Public Use
  Company Number: US-ROCHE-724580

PATIENT
  Sex: Female
  Weight: 46.762 kg

DRUGS (1)
  1. ACCUTANE [Suspect]
     Indication: ACNE
     Route: 065
     Dates: start: 19990101, end: 20000101

REACTIONS (7)
  - CROHN'S DISEASE [None]
  - INTESTINAL HAEMORRHAGE [None]
  - DEPRESSION [None]
  - INFLAMMATORY BOWEL DISEASE [None]
  - RECTAL HAEMORRHAGE [None]
  - ABDOMINAL PAIN [None]
  - NAUSEA [None]
